FAERS Safety Report 10174227 (Version 1)
Quarter: 2014Q2

REPORT INFORMATION
  Report Type: Spontaneous
  Country: CZ (occurrence: CZ)
  Receive Date: 20140515
  Receipt Date: 20140515
  Transmission Date: 20141212
  Serious: Yes (Life-Threatening, Hospitalization, Other)
  Sender: FDA-Public Use
  Company Number: CZ-WATSON-2014-09456

PATIENT
  Age: 58 Year
  Sex: Male
  Weight: 118 kg

DRUGS (2)
  1. PIOGLITAZONE ACTAVIS [Suspect]
     Indication: TYPE 2 DIABETES MELLITUS
     Dosage: 45 MG, DAILY;1-1/2-0 (ONE AND A HALF PER DAY)
     Route: 048
  2. TEZEO [Concomitant]
     Indication: PRODUCT USED FOR UNKNOWN INDICATION
     Dosage: UNK; BID
     Route: 048

REACTIONS (1)
  - Generalised oedema [Unknown]
